FAERS Safety Report 22071379 (Version 1)
Quarter: 2023Q1

REPORT INFORMATION
  Report Type: Spontaneous
  Country: US (occurrence: None)
  Receive Date: 20230307
  Receipt Date: 20230307
  Transmission Date: 20230418
  Serious: Yes (Other)
  Sender: FDA-Public Use
  Company Number: None

PATIENT
  Age: 56 Year
  Sex: Male
  Weight: 90 kg

DRUGS (3)
  1. PAXLOVID [Suspect]
     Active Substance: NIRMATRELVIR\RITONAVIR
     Indication: COVID-19
     Dosage: OTHER QUANTITY : 3 TABLET(S);?FREQUENCY : EVERY 12 HOURS;?
     Route: 048
     Dates: start: 20230305, end: 20230306
  2. 1000mg of Tylenol [Concomitant]
  3. 400mg of Motrin rotation every 4 hours to maintain fever [Concomitant]

REACTIONS (2)
  - Vision blurred [None]
  - Hypertension [None]

NARRATIVE: CASE EVENT DATE: 20230306
